FAERS Safety Report 13496028 (Version 1)
Quarter: 2017Q2

REPORT INFORMATION
  Report Type: Spontaneous
  Country: US (occurrence: US)
  Receive Date: 20170428
  Receipt Date: 20170428
  Transmission Date: 20170830
  Serious: No
  Sender: FDA-Public Use
  Company Number: US-GLAXOSMITHKLINE-US2017057672

PATIENT
  Age: 62 Year
  Sex: Male

DRUGS (2)
  1. LAMISIL AT CONTINUOUS SPRAY [Suspect]
     Active Substance: TERBINAFINE HYDROCHLORIDE
     Dosage: UNK
  2. LAMISIL AT CONTINUOUS SPRAY [Suspect]
     Active Substance: TERBINAFINE HYDROCHLORIDE
     Indication: DRY SKIN
     Dosage: UNK
     Dates: start: 201704

REACTIONS (3)
  - Product use in unapproved indication [Unknown]
  - Drug administered at inappropriate site [Unknown]
  - Product quality issue [Unknown]
